FAERS Safety Report 25941331 (Version 1)
Quarter: 2025Q4

REPORT INFORMATION
  Report Type: Spontaneous
  Country: None (occurrence: EU)
  Receive Date: 20251020
  Receipt Date: 20251020
  Transmission Date: 20260117
  Serious: Yes (Other)
  Sender: ALNYLAM PHARMACEUTICALS
  Company Number: EU-ALNYLAM PHARMACEUTICALS, INC.-ALN-2025-006419

PATIENT
  Age: 4 Year

DRUGS (3)
  1. OXLUMO [Suspect]
     Active Substance: LUMASIRAN
     Indication: Primary hyperoxaluria
     Route: 065
  2. VITAMIN B6 [Concomitant]
     Active Substance: PYRIDOXINE HYDROCHLORIDE
     Indication: Primary hyperoxaluria
     Route: 065
  3. NEDOSIRAN [Concomitant]
     Active Substance: NEDOSIRAN
     Indication: Primary hyperoxaluria
     Route: 065

REACTIONS (5)
  - Renal impairment [Unknown]
  - Kidney transplant rejection [Unknown]
  - Hyperoxaluria [Unknown]
  - Renal transplant [Unknown]
  - Bone pain [Unknown]
